FAERS Safety Report 23445553 (Version 2)
Quarter: 2024Q1

REPORT INFORMATION
  Report Type: Spontaneous
  Country: US (occurrence: US)
  Receive Date: 20240126
  Receipt Date: 20240229
  Transmission Date: 20240410
  Serious: No
  Sender: FDA-Public Use
  Company Number: US-AMGEN-USASP2024014998

PATIENT
  Age: 70 Year
  Sex: Female
  Weight: 52 kg

DRUGS (3)
  1. NEULASTA [Suspect]
     Active Substance: PEGFILGRASTIM
     Indication: White blood cell count decreased
     Dosage: 6 MILLIGRAM, Q3WK (EVERY 21 DAYS IF NEEDED, BASED OF BLOOD COUNT)
     Route: 058
  2. NEULASTA [Suspect]
     Active Substance: PEGFILGRASTIM
     Dosage: 6 MILLIGRAM, Q3WK (EVERY 21 DAYS IF NEEDED, BASED OF BLOOD COUNT)
     Route: 058
  3. NEULASTA [Suspect]
     Active Substance: PEGFILGRASTIM
     Dosage: 6 MILLIGRAM, Q3WK (EVERY 21 DAYS IF NEEDED, BASED OF BLOOD COUNT)
     Route: 058

REACTIONS (1)
  - Device adhesion issue [Unknown]

NARRATIVE: CASE EVENT DATE: 20240122
